FAERS Safety Report 5673311-X (Version None)
Quarter: 2008Q1

REPORT INFORMATION
  Report Type: 
  Country: None (occurrence: None)
  Receive Date: 20080319
  Receipt Date: 20080313
  Transmission Date: 20080703
  Serious: Yes (Hospitalization, Other)
  Sender: FDA-Public Use
  Company Number: HQWYE090426OCT04

PATIENT
  Sex: Female

DRUGS (5)
  1. PREMPRO [Suspect]
  2. ESTRATEST [Suspect]
  3. PROVERA [Suspect]
  4. MEDROXYPROGESTERONE ACETATE [Suspect]
  5. PREMARIN [Suspect]

REACTIONS (1)
  - BREAST CANCER RECURRENT [None]
